FAERS Safety Report 6445672-5 (Version None)
Quarter: 2009Q4

REPORT INFORMATION
  Report Type: 
  Country: None (occurrence: None)
  Receive Date: 20091118
  Receipt Date: 20091118
  Transmission Date: 20100525
  Serious: Yes (Hospitalization)
  Sender: FDA-Public Use
  Company Number: None

PATIENT
  Age: 65 Year
  Sex: Male
  Weight: 85.28 kg

DRUGS (1)
  1. CYCLOBENZAPRINE [Suspect]
     Indication: PAIN
     Dosage: 10 MG TID PO
     Route: 048
     Dates: start: 20090611, end: 20090612

REACTIONS (2)
  - CONFUSIONAL STATE [None]
  - HALLUCINATION [None]
